FAERS Safety Report 12105716 (Version 2)
Quarter: 2016Q1

REPORT INFORMATION
  Report Type: Spontaneous
  Country: US (occurrence: US)
  Receive Date: 20160223
  Receipt Date: 20160226
  Transmission Date: 20160526
  Serious: Yes (Other)
  Sender: FDA-Public Use
  Company Number: US-BAYER-2016-033051

PATIENT
  Age: 68 Year
  Sex: Male
  Weight: 103.86 kg

DRUGS (2)
  1. AFRIN NO DRIP ORIGINAL PUMP MIST [Suspect]
     Active Substance: OXYMETAZOLINE HYDROCHLORIDE
  2. AFRIN ORIGINAL [Suspect]
     Active Substance: OXYMETAZOLINE HYDROCHLORIDE
     Indication: EPISTAXIS
     Route: 055

REACTIONS (6)
  - Off label use [None]
  - Product use issue [None]
  - Therapeutic response unexpected [None]
  - Choking [None]
  - Wrong technique in product usage process [None]
  - Product container issue [None]
